FAERS Safety Report 8420122-8 (Version None)
Quarter: 2012Q2

REPORT INFORMATION
  Report Type: 
  Country: None (occurrence: None)
  Receive Date: 20120607
  Receipt Date: 20120525
  Transmission Date: 20120825
  Serious: No
  Sender: FDA-Public Use
  Company Number: US-ASTRAZENECA-2012SE34135

PATIENT
  Age: 64 Year
  Sex: Female
  Weight: 99.8 kg

DRUGS (24)
  1. SEROQUEL XR [Suspect]
     Indication: DEPRESSION
     Route: 048
     Dates: end: 20120502
  2. SEROQUEL XR [Suspect]
     Route: 048
  3. SEROQUEL XR [Suspect]
     Route: 048
  4. ALBUTEROL [Concomitant]
     Dosage: PRN
  5. GABAPENTIN [Concomitant]
     Route: 048
  6. SINGULAIR [Concomitant]
     Route: 048
  7. TRAZODONE HCL [Concomitant]
     Route: 048
  8. SYMBICORT [Suspect]
     Indication: ASTHMA
     Dosage: 160/4.5 MCG, TWICE DAILY
     Route: 055
  9. SEROQUEL XR [Suspect]
     Indication: BIPOLAR DISORDER
     Route: 048
     Dates: end: 20120502
  10. SEROQUEL XR [Suspect]
     Route: 048
  11. CRESTOR [Concomitant]
  12. EFFIENT [Concomitant]
  13. ACTOS [Concomitant]
  14. GLUCOVAN [Concomitant]
     Dosage: 2.5/500 MG,QD
  15. MICARDIS [Concomitant]
  16. OMEPRAZOLE [Concomitant]
  17. AMBIEN GENERIC [Concomitant]
     Indication: SLEEP DISORDER
     Dosage: 1 PILL, HS
  18. ASPIRIN [Concomitant]
  19. FLEXERIL [Concomitant]
  20. OXYGEN CONCENTRATION [Concomitant]
  21. SEROQUEL XR [Suspect]
     Indication: SLEEP DISORDER
     Route: 048
     Dates: end: 20120502
  22. OXYCODONE HCL [Concomitant]
     Dosage: 10/325 MG, TWO CAPS, Q4H
     Route: 048
  23. PANTOXYFYLLIN ER [Concomitant]
     Route: 048
  24. RANOLAZINE [Concomitant]

REACTIONS (4)
  - OFF LABEL USE [None]
  - INTENTIONAL DRUG MISUSE [None]
  - TREMOR [None]
  - HEARING IMPAIRED [None]
